FAERS Safety Report 5817908-2 (Version None)
Quarter: 2008Q3

REPORT INFORMATION
  Report Type: 
  Country: None (occurrence: None)
  Receive Date: 20080722
  Receipt Date: 20070713
  Transmission Date: 20090109
  Serious: No
  Sender: FDA-Public Use
  Company Number: US-BAYER-US-2007-026111

PATIENT
  Age: 33 Year
  Sex: Female
  Weight: 135 kg

DRUGS (2)
  1. MAGNEVIST [Suspect]
     Indication: NUCLEAR MAGNETIC RESONANCE IMAGING
     Dosage: UNIT DOSE: 20 ML
     Route: 042
     Dates: start: 20070706, end: 20070706
  2. XANAX [Concomitant]
     Route: 048

REACTIONS (5)
  - ERYTHEMA [None]
  - LIP SWELLING [None]
  - OROPHARYNGEAL DISCOMFORT [None]
  - SNEEZING [None]
  - URTICARIA [None]
